FAERS Safety Report 19102607 (Version 1)
Quarter: 2021Q2

REPORT INFORMATION
  Report Type: Spontaneous
  Country: US (occurrence: US)
  Receive Date: 20210407
  Receipt Date: 20210407
  Transmission Date: 20210717
  Serious: Yes (Other)
  Sender: FDA-Public Use
  Company Number: None

PATIENT
  Sex: Female

DRUGS (1)
  1. MIRALAX [Suspect]
     Active Substance: POLYETHYLENE GLYCOL 3350
     Dates: start: 20210401, end: 20210401

REACTIONS (6)
  - Chills [None]
  - Limb discomfort [None]
  - Gait disturbance [None]
  - Abdominal distension [None]
  - Pharyngeal swelling [None]
  - Night sweats [None]

NARRATIVE: CASE EVENT DATE: 20210401
